FAERS Safety Report 20977147 (Version 1)
Quarter: 2022Q2

REPORT INFORMATION
  Report Type: Spontaneous
  Country: JP (occurrence: JP)
  Receive Date: 20220617
  Receipt Date: 20220617
  Transmission Date: 20220721
  Serious: Yes (Other)
  Sender: FDA-Public Use
  Company Number: JP-SA-2018SA255720

PATIENT
  Sex: Female

DRUGS (2)
  1. HERBESSER [Suspect]
     Active Substance: DILTIAZEM HYDROCHLORIDE
     Indication: Prinzmetal angina
     Route: 048
  2. HERBESSER [Suspect]
     Active Substance: DILTIAZEM HYDROCHLORIDE
     Indication: Microvascular coronary artery disease

REACTIONS (6)
  - Brain natriuretic peptide increased [Unknown]
  - Blood antidiuretic hormone increased [Unknown]
  - Urine output increased [Unknown]
  - Thirst [Unknown]
  - Cardiac failure [Unknown]
  - No adverse event [Unknown]
